FAERS Safety Report 9276355 (Version 1)
Quarter: 2013Q2

REPORT INFORMATION
  Report Type: Spontaneous
  Country: BR (occurrence: BR)
  Receive Date: 20130507
  Receipt Date: 20130507
  Transmission Date: 20140414
  Serious: Yes (Hospitalization)
  Sender: FDA-Public Use
  Company Number: BR-AMGEN-BRASP2013031319

PATIENT
  Age: 72 Year
  Sex: Female
  Weight: 75 kg

DRUGS (3)
  1. ENBREL [Suspect]
     Indication: RHEUMATOID ARTHRITIS
     Dosage: 50 MG, ONCE WEEKLY
     Dates: start: 2011
  2. HYDROCHLOROTHIAZIDE [Suspect]
     Indication: HYPERTENSION
     Dosage: 1 TABLET IN THE MORNING
  3. LOSARTAN [Concomitant]
     Indication: HYPERTENSION
     Dosage: 1 TABLET IN THE MORNING AND ANOTHER IN THE AFTERNOON, EVERY DAY

REACTIONS (7)
  - Hypertension [Unknown]
  - Asthenia [Unknown]
  - Bone pain [Unknown]
  - Blood triglycerides increased [Unknown]
  - Nervousness [Unknown]
  - Pain [Unknown]
  - Weight decreased [Unknown]
